FAERS Safety Report 15368143 (Version 1)
Quarter: 2018Q3

REPORT INFORMATION
  Report Type: Spontaneous
  Country: IT (occurrence: IT)
  Receive Date: 20180910
  Receipt Date: 20180910
  Transmission Date: 20181010
  Serious: Yes (Life-Threatening, Hospitalization)
  Sender: FDA-Public Use
  Company Number: IT-AVADEL LEGACY PHARMACEUTICALS, LLC-2018AVA00303

PATIENT
  Age: 32 Year
  Sex: Male

DRUGS (2)
  1. CLENBUTEROL [Suspect]
     Active Substance: CLENBUTEROL
     Route: 065
  2. EPHEDRINE SULFATE. [Suspect]
     Active Substance: EPHEDRINE SULFATE
     Route: 065

REACTIONS (4)
  - Hepatic rupture [Recovered/Resolved]
  - Haemorrhage [Recovered/Resolved]
  - Circulatory collapse [Recovered/Resolved]
  - Shock haemorrhagic [Recovered/Resolved]
